FAERS Safety Report 11708603 (Version 1)
Quarter: 2015Q4

REPORT INFORMATION
  Report Type: Spontaneous
  Country: US (occurrence: US)
  Receive Date: 20151104
  Receipt Date: 20151104
  Transmission Date: 20160304
  Serious: No
  Sender: FDA-Public Use
  Company Number: US-ELI_LILLY_AND_COMPANY-US201107003906

PATIENT
  Age: 56 Year
  Sex: Male

DRUGS (16)
  1. FORTEO [Suspect]
     Active Substance: TERIPARATIDE
     Indication: OSTEOPOROSIS
     Dosage: 29 UG, QD
     Route: 065
     Dates: start: 201106
  2. OMEPRAZOLE. [Concomitant]
     Active Substance: OMEPRAZOLE
     Dosage: 20 MG, QD
  3. FORTEO [Suspect]
     Active Substance: TERIPARATIDE
     Dosage: 20 UG, QD
  4. VITAMIN D [Concomitant]
     Active Substance: CHOLECALCIFEROL
     Dosage: 800 IU, UNK
  5. FEXOFENADINE [Concomitant]
     Active Substance: FEXOFENADINE\FEXOFENADINE HYDROCHLORIDE
  6. SPIRIVA [Concomitant]
     Active Substance: TIOTROPIUM BROMIDE MONOHYDRATE
     Dosage: 18 MG, QD
  7. ROPINIROLE. [Concomitant]
     Active Substance: ROPINIROLE
     Dosage: 4.5 MG, QD
  8. SAW PALMETTO [Concomitant]
     Active Substance: SAW PALMETTO
     Dosage: UNK, QD
  9. CALCIUM [Concomitant]
     Active Substance: CALCIUM
     Dosage: 1200 MG, QD
  10. ASPIRIN. [Concomitant]
     Active Substance: ASPIRIN
     Dosage: 81 MG, UNK
  11. FORMOTEROL [Concomitant]
     Active Substance: FORMOTEROL
     Dosage: 5 UG, BID
  12. MOMETASONE [Concomitant]
     Active Substance: MOMETASONE
     Dosage: 5 UG, BID
  13. SELENIUM [Concomitant]
     Active Substance: SELENIUM
     Dosage: 200 MG, QD
  14. LEVITRA [Concomitant]
     Active Substance: VARDENAFIL HYDROCHLORIDE TRIHYDRATE
     Dosage: 20 MG, WEEKLY (1/W)
  15. CRESTOR [Concomitant]
     Active Substance: ROSUVASTATIN CALCIUM
     Dosage: 10 MG, WEEKLY (1/W)
  16. VITAMIN D [Concomitant]
     Active Substance: CHOLECALCIFEROL
     Dosage: 50000 IU, QD

REACTIONS (2)
  - Prostatic specific antigen increased [Unknown]
  - Bone pain [Unknown]

NARRATIVE: CASE EVENT DATE: 20110806
